FAERS Safety Report 9062120 (Version 1)
Quarter: 2013Q1

REPORT INFORMATION
  Report Type: Spontaneous
  Country: US (occurrence: US)
  Receive Date: 20130129
  Receipt Date: 20130129
  Transmission Date: 20140127
  Serious: Yes (Hospitalization, Other)
  Sender: FDA-Public Use
  Company Number: PHHY2013US006047

PATIENT
  Age: 57 Year
  Sex: Female

DRUGS (3)
  1. PHENYTOIN [Suspect]
     Indication: CONVULSION
  2. DEXAMETHASONE [Interacting]
     Indication: CONVULSION
  3. LEVETIRACETAM [Concomitant]

REACTIONS (7)
  - Unresponsive to stimuli [Recovered/Resolved]
  - Thrombocytopenia [Recovered/Resolved]
  - Rash generalised [Unknown]
  - Confusional state [Recovered/Resolved]
  - Mental status changes [Recovered/Resolved]
  - Convulsion [Recovered/Resolved]
  - Drug interaction [Unknown]
